FAERS Safety Report 7490117-X (Version None)
Quarter: 2011Q2

REPORT INFORMATION
  Report Type: 
  Country: None (occurrence: None)
  Receive Date: 20110519
  Receipt Date: 20110516
  Transmission Date: 20111010
  Serious: No
  Sender: FDA-Public Use
  Company Number: US-PFIZER INC-2011035892

PATIENT
  Sex: Male
  Weight: 99.773 kg

DRUGS (5)
  1. LIPITOR [Suspect]
     Indication: BLOOD CHOLESTEROL INCREASED
     Dosage: 10 MG, 1X/DAY
     Route: 048
  2. DEXLANSOPRAZOLE [Concomitant]
     Indication: GASTROOESOPHAGEAL REFLUX DISEASE
     Dosage: DAILY
     Route: 048
  3. GLUCOSAMINE HYDROCHLORIDE/CHONDROITIN SULFATE [Suspect]
     Indication: SUPPLEMENTATION THERAPY
     Dosage: UNK
     Dates: start: 20100101
  4. VITAMIN D [Suspect]
     Indication: VITAMIN D DEFICIENCY
     Dosage: UNK
     Dates: start: 20100101
  5. MAGNESIUM SULFATE [Suspect]
     Indication: MAGNESIUM DEFICIENCY
     Dosage: UNK
     Dates: start: 20100101

REACTIONS (4)
  - DYSPEPSIA [None]
  - DRUG INEFFECTIVE [None]
  - LOW DENSITY LIPOPROTEIN INCREASED [None]
  - BLOOD CHOLESTEROL INCREASED [None]
